FAERS Safety Report 10934220 (Version 1)
Quarter: 2015Q1

REPORT INFORMATION
  Report Type: Spontaneous
  Country: US (occurrence: US)
  Receive Date: 20150320
  Receipt Date: 20150320
  Transmission Date: 20150721
  Serious: Yes (Hospitalization, Other)
  Sender: FDA-Public Use
  Company Number: US-JNJFOC-20150208511

PATIENT
  Age: 72 Year
  Sex: Male

DRUGS (9)
  1. LEXAPRO [Concomitant]
     Active Substance: ESCITALOPRAM OXALATE
  2. OXYCODONE [Concomitant]
     Active Substance: OXYCODONE
     Dosage: PRN
  3. IMBRUVICA [Suspect]
     Active Substance: IBRUTINIB
     Indication: CHRONIC LYMPHOCYTIC LEUKAEMIA
     Route: 048
     Dates: start: 2014, end: 20141205
  4. ACETAMINOPHEN. [Concomitant]
     Active Substance: ACETAMINOPHEN
     Dosage: PRN
  5. IMBRUVICA [Suspect]
     Active Substance: IBRUTINIB
     Indication: CHRONIC LYMPHOCYTIC LEUKAEMIA
     Route: 048
     Dates: start: 20141230
  6. IMBRUVICA [Suspect]
     Active Substance: IBRUTINIB
     Indication: CHRONIC LYMPHOCYTIC LEUKAEMIA
     Route: 048
     Dates: start: 2014, end: 2014
  7. FLOMAX [Concomitant]
     Active Substance: TAMSULOSIN HYDROCHLORIDE
  8. IMBRUVICA [Suspect]
     Active Substance: IBRUTINIB
     Indication: CHRONIC LYMPHOCYTIC LEUKAEMIA
     Route: 048
     Dates: start: 20140313, end: 2014
  9. AVODART [Concomitant]
     Active Substance: DUTASTERIDE

REACTIONS (16)
  - Myopathy [Unknown]
  - Acute prerenal failure [Recovering/Resolving]
  - Dehydration [Unknown]
  - Urinary retention [Unknown]
  - Diarrhoea [Unknown]
  - Pyrexia [Recovered/Resolved]
  - Dry mouth [Unknown]
  - Hypertension [Unknown]
  - Odynophagia [Unknown]
  - Confusional state [Unknown]
  - Weight increased [Unknown]
  - Jugular vein thrombosis [Unknown]
  - Urinary tract infection [Unknown]
  - Anaemia [Unknown]
  - Pneumonia aspiration [Recovering/Resolving]
  - Dysphonia [Unknown]

NARRATIVE: CASE EVENT DATE: 2014
